FAERS Safety Report 24352513 (Version 2)
Quarter: 2025Q2

REPORT INFORMATION
  Report Type: Report from Study
  Country: US (occurrence: US)
  Receive Date: 20240923
  Receipt Date: 20250607
  Transmission Date: 20250716
  Serious: No
  Sender: STEMLINE THERAPEUTICS
  Company Number: US-Stemline Therapeutics, Inc.-2024ST002682

PATIENT

DRUGS (2)
  1. ORSERDU [Suspect]
     Active Substance: ELACESTRANT
     Indication: Breast cancer female
     Dosage: 345 MG, DAILY
     Route: 048
     Dates: start: 20240222
  2. ORSERDU [Suspect]
     Active Substance: ELACESTRANT
     Dosage: 345 MG, DAILY
     Route: 048

REACTIONS (10)
  - Lacrimation increased [Unknown]
  - Nasopharyngitis [Unknown]
  - Herpes zoster [Unknown]
  - Arthritis [Unknown]
  - Balance disorder [Unknown]
  - Gait disturbance [Unknown]
  - Bone lesion [Unknown]
  - Radiation inflammation [Unknown]
  - Asthenia [Unknown]
  - Tumour marker increased [Unknown]

NARRATIVE: CASE EVENT DATE: 20240101
